FAERS Safety Report 21769455 (Version 2)
Quarter: 2023Q1

REPORT INFORMATION
  Report Type: Report from Study
  Country: CA (occurrence: CA)
  Receive Date: 20221223
  Receipt Date: 20230131
  Transmission Date: 20230418
  Serious: Yes (Other)
  Sender: FDA-Public Use
  Company Number: CA-ABBVIE-4246861

PATIENT
  Sex: Female

DRUGS (1)
  1. RINVOQ [Suspect]
     Active Substance: UPADACITINIB
     Indication: Rheumatoid arthritis
     Dosage: STRENGTH: 15MG
     Route: 048
     Dates: start: 20220621, end: 20221211

REACTIONS (4)
  - Ovarian cancer [Unknown]
  - Bronchitis [Unknown]
  - Fallopian tube cancer [Unknown]
  - Malignant peritoneal neoplasm [Unknown]
